FAERS Safety Report 6195712-6 (Version None)
Quarter: 2009Q2

REPORT INFORMATION
  Report Type: 
  Country: None (occurrence: None)
  Receive Date: 20090520
  Receipt Date: 20070925
  Transmission Date: 20091009
  Serious: Yes (Death, Other)
  Sender: FDA-Public Use
  Company Number: US-ASTRAZENECA-2006UW22490

PATIENT
  Age: 62 Year
  Sex: Female
  Weight: 116.6 kg

DRUGS (18)
  1. SEROQUEL [Suspect]
     Indication: SCHIZOPHRENIA
     Route: 048
     Dates: start: 20040915, end: 20050101
  2. SEROQUEL [Suspect]
     Indication: DEPRESSION
     Route: 048
     Dates: start: 20040915, end: 20050101
  3. TIAZAC [Concomitant]
     Dosage: DISPENSED
     Route: 065
  4. COLCHICINE [Concomitant]
     Route: 065
  5. LEVAQUIN [Concomitant]
  6. ZYRTEC [Concomitant]
     Route: 065
  7. PHENYTOIN SODIUM [Concomitant]
     Route: 065
  8. KLOR-CON [Concomitant]
     Route: 065
  9. GLIPIZIDE [Concomitant]
     Dosage: DISPENSED
     Route: 065
  10. PREVACID [Concomitant]
     Dosage: DISPENSED
     Route: 065
  11. DIOVAN [Concomitant]
  12. KEPPRA [Concomitant]
     Dosage: DISPENSED
     Route: 065
  13. TUSSIONEX [Concomitant]
     Route: 065
  14. TAXOL [Concomitant]
     Dosage: DISPENSED
     Route: 065
  15. CARBOPLATIN [Concomitant]
     Route: 065
  16. HYDROCODONE BITARTRATE [Concomitant]
     Route: 065
  17. ALLOPURINOL [Concomitant]
     Route: 048
  18. PRIMIDONE [Concomitant]
     Route: 065

REACTIONS (13)
  - ARTHRALGIA [None]
  - CATARACT [None]
  - CONVULSION [None]
  - DEATH [None]
  - DIABETES MELLITUS [None]
  - METASTASES TO CENTRAL NERVOUS SYSTEM [None]
  - METASTASES TO LUNG [None]
  - MYALGIA [None]
  - NEOPLASM MALIGNANT [None]
  - NEUROPATHY PERIPHERAL [None]
  - NON-SMALL CELL LUNG CANCER [None]
  - REFRACTION DISORDER [None]
  - THROMBOSIS [None]
